FAERS Safety Report 8774987 (Version 1)
Quarter: 2012Q4

REPORT INFORMATION
  Report Type: 
  Country: NZ (occurrence: NZ)
  Receive Date: 20120910
  Receipt Date: 20120910
  Transmission Date: 20130627
  Serious: Yes (Other)
  Sender: FDA-Public Use
  Company Number: NZ-009507513-1209NZL000547

PATIENT

DRUGS (1)
  1. FOSAMAX 70 MG ONCE WEEKLY [Suspect]
     Indication: OSTEOPOROSIS
     Dosage: 70 mg, qw
     Route: 048

REACTIONS (1)
  - Osteonecrosis [Not Recovered/Not Resolved]
